FAERS Safety Report 21669913 (Version 1)
Quarter: 2022Q4

REPORT INFORMATION
  Report Type: Spontaneous
  Country: PL (occurrence: PL)
  Receive Date: 20221201
  Receipt Date: 20221201
  Transmission Date: 20230113
  Serious: Yes (Other)
  Sender: FDA-Public Use
  Company Number: PL-AMGEN-POLSP2022164782

PATIENT
  Age: 62 Year
  Sex: Female

DRUGS (3)
  1. LENALIDOMIDE [Suspect]
     Active Substance: LENALIDOMIDE
     Indication: Plasma cell myeloma
     Dosage: 25MG,QD ON DAYS 1-21 IN REPEATED 28-DAY CYCLES
     Route: 048
  2. KYPROLIS [Suspect]
     Active Substance: CARFILZOMIB
     Indication: Plasma cell myeloma
     Dosage: 20 MILLIGRAM/SQ. METER, DAYS 1 AND 2 IN CYCLE 1,
     Route: 065
  3. DEXAMETHASONE [Suspect]
     Active Substance: DEXAMETHASONE
     Indication: Plasma cell myeloma
     Dosage: 40MG,ONCE DAILY ON DAYS 1,8,15AND 22OF 28DAY CYCLE
     Route: 065

REACTIONS (5)
  - Tricuspid valve incompetence [Unknown]
  - Cardiomegaly [Unknown]
  - Mitral valve prolapse [Unknown]
  - Left ventricular hypertrophy [Unknown]
  - Vertebral lesion [Unknown]
